FAERS Safety Report 7190256-7 (Version None)
Quarter: 2010Q4

REPORT INFORMATION
  Report Type: 
  Country: None (occurrence: None)
  Receive Date: 20101223
  Receipt Date: 20101213
  Transmission Date: 20110411
  Serious: Yes (Death, Other)
  Sender: FDA-Public Use
  Company Number: PHHY2010US73888

PATIENT
  Sex: Male

DRUGS (6)
  1. EXJADE [Suspect]
     Indication: IRON OVERLOAD
     Dosage: 500 MG, DAILY
     Route: 048
     Dates: start: 20100325, end: 20100901
  2. NEUPOGEN [Concomitant]
     Route: 058
  3. FLORINEF [Concomitant]
     Route: 048
  4. BACTRIM [Concomitant]
     Route: 048
  5. ZOLOFT [Concomitant]
     Route: 048
  6. ATIVAN [Concomitant]
     Route: 048

REACTIONS (2)
  - COMPLICATIONS OF BONE MARROW TRANSPLANT [None]
  - LIVER FUNCTION TEST ABNORMAL [None]
